FAERS Safety Report 6292964-9 (Version None)
Quarter: 2009Q3

REPORT INFORMATION
  Report Type: 
  Country: None (occurrence: None)
  Receive Date: 20090729
  Receipt Date: 20090720
  Transmission Date: 20100115
  Serious: Yes (Other)
  Sender: FDA-Public Use
  Company Number: ADR7912009

PATIENT
  Age: 58 Year
  Sex: Female

DRUGS (6)
  1. ALENDRONIC ACID (MFR: UNKNOWN) [Suspect]
     Indication: OSTEOPOROSIS
     Dosage: 70 MG WEEKLY ORAL USE
     Route: 048
     Dates: end: 20080905
  2. ADCAL-D3 [Concomitant]
  3. CAPASAL [Concomitant]
  4. DOTHIEPIN HYDROCHLORIDE [Concomitant]
  5. EXEMESTANE [Concomitant]
  6. STRONTIUM RANELATE [Concomitant]

REACTIONS (5)
  - BLISTER [None]
  - ECZEMA [None]
  - MOUTH ULCERATION [None]
  - POOR QUALITY SLEEP [None]
  - VAGINAL MUCOSAL BLISTERING [None]
